FAERS Safety Report 4837106-9 (Version None)
Quarter: 2005Q4

REPORT INFORMATION
  Report Type: 
  Country: None (occurrence: None)
  Receive Date: 20051121
  Receipt Date: 20051121
  Transmission Date: 20060501
  Serious: Yes (Death)
  Sender: FDA-Public Use
  Company Number: None

PATIENT
  Sex: Female
  Weight: 62.8 kg

DRUGS (6)
  1. CYTARABINE [Suspect]
     Indication: ACUTE LYMPHOCYTIC LEUKAEMIA
     Dosage: SEE IMAGE
     Route: 037
     Dates: start: 20051024, end: 20051024
  2. VINCRISTINE [Suspect]
     Dosage: SEE IMAGE
     Route: 042
     Dates: start: 20051024, end: 20051107
  3. DEXAMETHASONE [Suspect]
     Dosage: SEE IMAGE
     Route: 048
     Dates: start: 20051024, end: 20051106
  4. DAUNORUBICIN HCL [Suspect]
     Dosage: SEE IMAGE
     Route: 042
     Dates: start: 20051024, end: 20051107
  5. PEG ASPARAGINASE [Suspect]
     Dosage: SEE IMAGE
     Route: 030
     Dates: start: 20051027, end: 20051027
  6. METHOTREXATE [Suspect]
     Dosage: SEE IMAGE
     Route: 039
     Dates: start: 20051031, end: 20051031

REACTIONS (3)
  - CHEST PAIN [None]
  - PNEUMONIA [None]
  - WHITE BLOOD CELL COUNT DECREASED [None]
